FAERS Safety Report 14548737 (Version 1)
Quarter: 2018Q1

REPORT INFORMATION
  Report Type: Spontaneous
  Country: US (occurrence: US)
  Receive Date: 20180219
  Receipt Date: 20180219
  Transmission Date: 20180509
  Serious: No
  Sender: FDA-Public Use
  Company Number: US-ROCHE-1933703

PATIENT
  Age: 51 Year
  Sex: Male

DRUGS (2)
  1. XOLAIR [Suspect]
     Active Substance: OMALIZUMAB
     Dosage: FROM COUPLE OF YEARS TO ONGOING
     Route: 058
  2. XOLAIR [Suspect]
     Active Substance: OMALIZUMAB
     Indication: ASTHMA
     Route: 058
     Dates: start: 201607

REACTIONS (4)
  - Musculoskeletal pain [Unknown]
  - Arthralgia [Unknown]
  - Oedema [Unknown]
  - Limb discomfort [Unknown]

NARRATIVE: CASE EVENT DATE: 201611
